FAERS Safety Report 9093008 (Version 1)
Quarter: 2013Q1

REPORT INFORMATION
  Report Type: Report from Study
  Country: US (occurrence: US)
  Receive Date: 20130218
  Receipt Date: 20130218
  Transmission Date: 20140127
  Serious: No
  Sender: FDA-Public Use
  Company Number: US-ABBOTT-12P-163-0981689-00

PATIENT
  Sex: Female

DRUGS (1)
  1. SIMCOR 500/40 [Suspect]
     Indication: BLOOD CHOLESTEROL INCREASED
     Dosage: 500MG/40MG
     Dates: start: 201208

REACTIONS (5)
  - Flushing [Not Recovered/Not Resolved]
  - Paraesthesia [Unknown]
  - Rash macular [Unknown]
  - Urticaria [Unknown]
  - Skin lesion [Unknown]
